FAERS Safety Report 25232159 (Version 2)
Quarter: 2025Q2

REPORT INFORMATION
  Report Type: Spontaneous
  Country: US (occurrence: US)
  Receive Date: 20250423
  Receipt Date: 20250623
  Transmission Date: 20250716
  Serious: Yes (Hospitalization, Other)
  Sender: UCB
  Company Number: US-UCBSA-2025023944

PATIENT
  Sex: Male

DRUGS (2)
  1. BIMZELX [Suspect]
     Active Substance: BIMEKIZUMAB-BKZX
     Indication: Psoriasis
     Dosage: 320 MILLIGRAM, EV 4 WEEKS
     Route: 058
     Dates: start: 202501
  2. BIMZELX [Suspect]
     Active Substance: BIMEKIZUMAB-BKZX
     Dosage: 320 MILLIGRAM, EV 8 WEEKS
     Route: 058
     Dates: start: 2025

REACTIONS (2)
  - Prostate cancer [Unknown]
  - Prostatectomy [Unknown]

NARRATIVE: CASE EVENT DATE: 20250101
